FAERS Safety Report 9402585 (Version 1)
Quarter: 2013Q3

REPORT INFORMATION
  Report Type: Spontaneous
  Country: US (occurrence: US)
  Receive Date: 20130716
  Receipt Date: 20130716
  Transmission Date: 20140515
  Serious: No
  Sender: FDA-Public Use
  Company Number: US-BAYER-2013-085654

PATIENT
  Age: 83 Year
  Sex: Male

DRUGS (2)
  1. AVELOX [Suspect]
     Dosage: UNK
  2. PREDNISONE [Concomitant]

REACTIONS (3)
  - Muscle spasms [None]
  - Dyspnoea [None]
  - Anxiety [None]
